FAERS Safety Report 24390034 (Version 3)
Quarter: 2024Q4

REPORT INFORMATION
  Report Type: Spontaneous
  Country: US (occurrence: US)
  Receive Date: 20241003
  Receipt Date: 20241110
  Transmission Date: 20250114
  Serious: Yes (Hospitalization)
  Sender: SANOFI AVENTIS
  Company Number: US-SA-2024SA280964

PATIENT
  Sex: Female
  Weight: 72.73 kg

DRUGS (1)
  1. DUPIXENT [Suspect]
     Active Substance: DUPILUMAB
     Indication: Dermatitis atopic
     Dosage: 300 MG, QOW
     Route: 058

REACTIONS (6)
  - Gastrointestinal infection [Unknown]
  - Large intestine infection [Unknown]
  - Malaise [Unknown]
  - Pharyngitis streptococcal [Unknown]
  - Pain [Unknown]
  - Inflammation [Unknown]
